FAERS Safety Report 4898539-8 (Version None)
Quarter: 2006Q1

REPORT INFORMATION
  Report Type: 
  Country: None (occurrence: None)
  Receive Date: 20060130
  Receipt Date: 20060117
  Transmission Date: 20060701
  Serious: Yes (Hospitalization)
  Sender: FDA-Public Use
  Company Number: CA-2005-017506

PATIENT
  Age: 60 Year
  Sex: Female

DRUGS (4)
  1. BETASERON [Suspect]
     Indication: MULTIPLE SCLEROSIS
     Dosage: 8 MIU, EVERY 2D, SUBCUTANEOUS
     Route: 058
     Dates: start: 19981201
  2. XANAX [Concomitant]
  3. NOVASEN (ACETYLSALSALICYLIC ACID) [Concomitant]
  4. ATRAXA /CAN/  (HYDROXYZINE HYDROCHLORIDE) [Concomitant]

REACTIONS (4)
  - CONFUSIONAL STATE [None]
  - FALL [None]
  - HEAD INJURY [None]
  - MULTIPLE SCLEROSIS RELAPSE [None]
